FAERS Safety Report 6907994-0 (Version None)
Quarter: 2010Q3

REPORT INFORMATION
  Report Type: 
  Country: None (occurrence: None)
  Receive Date: 20100805
  Receipt Date: 20100722
  Transmission Date: 20110219
  Serious: Yes (Death)
  Sender: FDA-Public Use
  Company Number: AU-RANBAXY-2010RR-36580

PATIENT
  Age: 32 Year
  Sex: Female

DRUGS (7)
  1. TRAMADOL HYDROCHLORIDE [Suspect]
  2. DOXEPIN HCL [Suspect]
  3. DIAZEPAM [Suspect]
  4. ACETAMINOPHEN [Suspect]
  5. CODEINE [Suspect]
  6. NAPROXEN [Suspect]
  7. THC [Suspect]

REACTIONS (3)
  - DRUG INTERACTION [None]
  - DRUG TOXICITY [None]
  - SEROTONIN SYNDROME [None]
